FAERS Safety Report 6210198-0 (Version None)
Quarter: 2009Q2

REPORT INFORMATION
  Report Type: 
  Country: None (occurrence: None)
  Receive Date: 20090601
  Receipt Date: 20090521
  Transmission Date: 20091009
  Serious: Yes (Other)
  Sender: FDA-Public Use
  Company Number: US-JNJFOC-20090505655

PATIENT
  Age: 60 Year
  Sex: Female
  Weight: 88.91 kg

DRUGS (5)
  1. TYLENOL (CAPLET) [Suspect]
     Route: 048
  2. TYLENOL (CAPLET) [Suspect]
     Indication: ARTHRALGIA
     Route: 048
  3. AMLODIPINE [Concomitant]
     Indication: HYPERTENSION
  4. BENAZEPRIL HYDROCHLORIDE [Concomitant]
     Indication: HYPERTENSION
  5. MOTRIN [Concomitant]
     Indication: ARTHRALGIA

REACTIONS (3)
  - CHOKING [None]
  - OROPHARYNGEAL PAIN [None]
  - VOMITING [None]
